FAERS Safety Report 13521985 (Version 7)
Quarter: 2017Q4

REPORT INFORMATION
  Report Type: Spontaneous
  Country: US (occurrence: US)
  Receive Date: 20170508
  Receipt Date: 20171005
  Transmission Date: 20180320
  Serious: Yes (Congenital Anomaly, Other)
  Sender: FDA-Public Use
  Company Number: PHEH2017US013394

PATIENT
  Sex: Female

DRUGS (2)
  1. ZOFRAN [Suspect]
     Active Substance: ONDANSETRON HYDROCHLORIDE
     Indication: FOETAL EXPOSURE DURING PREGNANCY
     Route: 064
  2. ONDANSETRONE DR. REDDY^S [Suspect]
     Active Substance: ONDANSETRON HYDROCHLORIDE
     Indication: FOETAL EXPOSURE DURING PREGNANCY
     Dosage: MOTHER DOSE: 04 MG, PRN
     Route: 064

REACTIONS (32)
  - Otitis media [Recovered/Resolved]
  - Decreased appetite [Unknown]
  - Diarrhoea [Unknown]
  - Cleft palate [Unknown]
  - Eczema [Unknown]
  - Adenoidal hypertrophy [Unknown]
  - Gastroenteritis [Unknown]
  - Ear infection [Unknown]
  - Pharyngitis [Unknown]
  - Viral infection [Unknown]
  - Rhinorrhoea [Unknown]
  - Foetal exposure during pregnancy [Unknown]
  - Strabismus [Unknown]
  - Respiratory syncytial virus infection [Unknown]
  - Nasal congestion [Unknown]
  - Abdominal pain [Unknown]
  - Dysuria [Unknown]
  - Developmental delay [Recovering/Resolving]
  - Pyrexia [Unknown]
  - Velopharyngeal incompetence [Unknown]
  - Cough [Not Recovered/Not Resolved]
  - Oropharyngeal pain [Unknown]
  - Urinary tract infection [Unknown]
  - Rhinitis allergic [Unknown]
  - Dysphonia [Unknown]
  - Anaemia [Unknown]
  - Dermatitis atopic [Unknown]
  - Acute sinusitis [Unknown]
  - Apraxia [Unknown]
  - Exposure to communicable disease [Unknown]
  - Injury [Unknown]
  - Speech disorder [Unknown]
